FAERS Safety Report 4964155-2 (Version None)
Quarter: 2006Q1

REPORT INFORMATION
  Report Type: 
  Country: None (occurrence: None)
  Receive Date: 20060330
  Receipt Date: 20060324
  Transmission Date: 20060701
  Serious: Yes (Other)
  Sender: FDA-Public Use
  Company Number: S06-USA-01138-01

PATIENT
  Age: 46 Year
  Sex: Male

DRUGS (10)
  1. AEROBID [Suspect]
     Indication: ASTHMA
     Dosage: 2 PUFF BID IH
     Route: 055
     Dates: start: 20040301
  2. AEROBID [Suspect]
     Indication: ASTHMA
     Dates: end: 20050801
  3. AEROBID [Suspect]
     Indication: ASTHMA
     Dosage: 8 PUFF QD IH
     Route: 055
     Dates: start: 20050801
  4. PULMICORT [Concomitant]
  5. ALBUTEROL [Concomitant]
  6. ATROVENT [Concomitant]
  7. SINGULAIR [Concomitant]
  8. SUDAFED 12 HOUR [Concomitant]
  9. CLARITIN [Concomitant]
  10. NIACIN [Concomitant]

REACTIONS (19)
  - ASTHMA [None]
  - BASOPHIL COUNT INCREASED [None]
  - BLOOD ALKALINE PHOSPHATASE DECREASED [None]
  - BLOOD PRESSURE DIASTOLIC INCREASED [None]
  - BLOOD PRESSURE SYSTOLIC DECREASED [None]
  - BLOOD UREA INCREASED [None]
  - BURNING SENSATION [None]
  - CONDITION AGGRAVATED [None]
  - CONVULSION [None]
  - DIZZINESS [None]
  - EOSINOPHIL COUNT INCREASED [None]
  - FALL [None]
  - INFLUENZA LIKE ILLNESS [None]
  - LOSS OF CONSCIOUSNESS [None]
  - MENTAL IMPAIRMENT [None]
  - MUSCLE SPASMS [None]
  - NAUSEA [None]
  - PEAK EXPIRATORY FLOW RATE DECREASED [None]
  - VERTIGO [None]
